FAERS Safety Report 15710167 (Version 1)
Quarter: 2018Q4

REPORT INFORMATION
  Report Type: Spontaneous
  Country: AT (occurrence: AT)
  Receive Date: 20181211
  Receipt Date: 20181211
  Transmission Date: 20190205
  Serious: Yes (Other)
  Sender: FDA-Public Use
  Company Number: PHHY2018AT180103

PATIENT
  Sex: Female

DRUGS (1)
  1. GILENYA [Suspect]
     Active Substance: FINGOLIMOD HYDROCHLORIDE
     Indication: RELAPSING-REMITTING MULTIPLE SCLEROSIS
     Dosage: UNK
     Route: 065
     Dates: start: 201201, end: 20180929

REACTIONS (9)
  - Central nervous system lesion [Unknown]
  - Hyponatraemia [Unknown]
  - Bladder dysfunction [Unknown]
  - Rebound effect [Unknown]
  - Prerenal failure [Unknown]
  - Status epilepticus [Unknown]
  - Adjustment disorder [Unknown]
  - Hyperkalaemia [Unknown]
  - Infection [Unknown]

NARRATIVE: CASE EVENT DATE: 201412
